FAERS Safety Report 24837425 (Version 1)
Quarter: 2025Q1

REPORT INFORMATION
  Report Type: Spontaneous
  Country: US (occurrence: None)
  Receive Date: 20250113
  Receipt Date: 20250113
  Transmission Date: 20250408
  Serious: Yes (Hospitalization)
  Sender: FDA-CTU
  Company Number: None

PATIENT
  Age: 63 Year
  Sex: Male

DRUGS (4)
  1. TOBRAMYCIN [Suspect]
     Active Substance: TOBRAMYCIN
  2. BREO ELLI PTA 200-25MCG ORAL INH(30) [Concomitant]
  3. OMEPRAZOLE 20MG (OTC) TABLETS [Concomitant]
  4. VENTOLIN HFA INH W/DOS CTR 200PUFFS [Concomitant]
     Indication: Respiratory disorder
     Dosage: FREQUENCY : TWICE A DAY;?
     Route: 055
     Dates: start: 202404

REACTIONS (1)
  - Pneumonia [None]

NARRATIVE: CASE EVENT DATE: 20241230
